FAERS Safety Report 25830135 (Version 2)
Quarter: 2025Q4

REPORT INFORMATION
  Report Type: Spontaneous
  Country: EU (occurrence: EU)
  Receive Date: 20250922
  Receipt Date: 20251113
  Transmission Date: 20260117
  Serious: Yes (Hospitalization)
  Sender: AUROBINDO
  Company Number: EU-ROCHE-10000379492

PATIENT
  Age: 52 Year
  Sex: Female
  Weight: 79 kg

DRUGS (7)
  1. CARBOPLATIN [Suspect]
     Active Substance: CARBOPLATIN
     Indication: Breast cancer
     Dosage: 330 MILLIGRAM (ON 16-MAY-2025, SHE RECEIVED THE MOST RECENT DOSE OF CARBOPLATIN PRIOR TO SAE.)
     Route: 042
     Dates: start: 20250422
  2. ATEZOLIZUMAB [Suspect]
     Active Substance: ATEZOLIZUMAB
     Indication: Breast cancer
     Dosage: 1200 MILLIGRAM (ON 06-AUG-2025, SHE RECEIVED THE MOST RECENT DOSE OF ATEZOLOZUMAB PRIOR TO SAE.)
     Route: 042
     Dates: start: 20250422
  3. TIRAGOLUMAB [Suspect]
     Active Substance: TIRAGOLUMAB
     Indication: Breast cancer
     Dosage: 600 MILLIGRAM (ON 06-AUG-2025, SHE RECEIVED THE MOST RECENT DOSE OF TIRAGOLUMAB PRIOR TO SAE.)
     Route: 042
     Dates: start: 20250422
  4. PACLITAXEL [Suspect]
     Active Substance: PACLITAXEL
     Indication: Breast cancer
     Dosage: 95 MILLIGRAM (ON 30-MAY-2025, SHE RECEIVED THE MOST RECENT DOSE OF NABPACLITAXEL PRIOR TO SAE.)
     Route: 042
     Dates: start: 20250422
  5. IRBESARTAN [Concomitant]
     Active Substance: IRBESARTAN
     Indication: Hypertension
     Dosage: UNK
     Route: 048
  6. Akynzeo [Concomitant]
     Indication: Product used for unknown indication
     Dosage: 1 DOSAGE FORM
     Route: 065
  7. FILGRASTIM [Concomitant]
     Active Substance: FILGRASTIM
     Indication: Product used for unknown indication
     Dosage: UNK
     Route: 030
     Dates: start: 20250606

REACTIONS (2)
  - Pyrexia [Unknown]
  - Febrile neutropenia [Recovered/Resolved]

NARRATIVE: CASE EVENT DATE: 20250728
